FAERS Safety Report 6686158-2 (Version None)
Quarter: 2010Q2

REPORT INFORMATION
  Report Type: 
  Country: None (occurrence: None)
  Receive Date: 20100419
  Receipt Date: 20100407
  Transmission Date: 20101027
  Serious: Yes (Other)
  Sender: FDA-Public Use
  Company Number: PHHY2010CA05300

PATIENT
  Sex: Female

DRUGS (5)
  1. EXJADE [Suspect]
     Indication: IRON OVERLOAD
     Dosage: 300 MG, UNK
     Route: 048
  2. EXJADE [Suspect]
     Dosage: 500 MG, QD
     Route: 048
  3. EXJADE [Suspect]
     Dosage: 1000 MG, QD
     Route: 048
     Dates: start: 20100201
  4. FLOVENT [Concomitant]
     Dosage: 2 PUFFS BID
  5. VENTOLIN [Concomitant]
     Dosage: 2 PUFFS BID

REACTIONS (7)
  - ABDOMINAL PAIN [None]
  - BACK PAIN [None]
  - FREQUENT BOWEL MOVEMENTS [None]
  - OROPHARYNGEAL PAIN [None]
  - RESPIRATORY DISORDER [None]
  - SENSATION OF FOREIGN BODY [None]
  - SINUSITIS [None]
